FAERS Safety Report 15942483 (Version 1)
Quarter: 2019Q1

REPORT INFORMATION
  Report Type: Spontaneous
  Country: US (occurrence: US)
  Receive Date: 20190211
  Receipt Date: 20190211
  Transmission Date: 20190417
  Serious: Yes (Other)
  Sender: FDA-Public Use
  Company Number: None

PATIENT
  Age: 13 Year
  Sex: Male
  Weight: 40.5 kg

DRUGS (1)
  1. DEXMETHYLPHENIDATE CR20-20 [Suspect]
     Active Substance: DEXMETHYLPHENIDATE HYDROCHLORIDE
     Indication: ATTENTION DEFICIT/HYPERACTIVITY DISORDER
     Dosage: ?          OTHER STRENGTH:HCL;QUANTITY:1 TABLET(S);?
     Route: 048
     Dates: end: 20190210

REACTIONS (9)
  - Pollakiuria [None]
  - Vomiting [None]
  - Enuresis [None]
  - Pallor [None]
  - Heart rate increased [None]
  - Nervousness [None]
  - Insomnia [None]
  - Sleep disorder [None]
  - Weight decreased [None]

NARRATIVE: CASE EVENT DATE: 20190210
